FAERS Safety Report 6130759-7 (Version None)
Quarter: 2009Q1

REPORT INFORMATION
  Report Type: 
  Country: None (occurrence: None)
  Receive Date: 20090325
  Receipt Date: 20090320
  Transmission Date: 20090719
  Serious: Yes (Hospitalization)
  Sender: FDA-Public Use
  Company Number: US-JNJFOC-20090305481

PATIENT
  Sex: Female
  Weight: 50.8 kg

DRUGS (8)
  1. FENTANYL TRANSDERMAL SYSTEM [Suspect]
     Indication: RHEUMATOID ARTHRITIS
     Route: 062
  2. ORENCIA [Concomitant]
     Indication: RHEUMATOID ARTHRITIS
     Route: 042
  3. LASIX [Concomitant]
     Indication: DRUG USE FOR UNKNOWN INDICATION
     Route: 048
  4. PRILOSEC [Concomitant]
     Indication: DRUG USE FOR UNKNOWN INDICATION
     Route: 048
  5. ZOLOFT [Concomitant]
     Indication: DEPRESSION
     Route: 048
  6. HYDROCODONE BITARTRATE [Concomitant]
     Indication: PAIN
     Dosage: ONE TABLET EVERY SIX HOURS AS NEEDED
     Route: 048
  7. TIMOLOL MALEATE [Concomitant]
     Indication: GLAUCOMA
     Route: 047
  8. XALATAN [Concomitant]
     Indication: ABNORMAL SENSATION IN EYE
     Route: 047

REACTIONS (3)
  - BLOOD POTASSIUM DECREASED [None]
  - DRUG ADMINISTERED AT INAPPROPRIATE SITE [None]
  - MALAISE [None]
